FAERS Safety Report 6008180-1 (Version None)
Quarter: 2008Q4

REPORT INFORMATION
  Report Type: 
  Country: None (occurrence: None)
  Receive Date: 20081217
  Receipt Date: 20080730
  Transmission Date: 20090506
  Serious: No
  Sender: FDA-Public Use
  Company Number: US-ASTRAZENECA-2008UW14952

PATIENT
  Age: 63 Year
  Sex: Male

DRUGS (6)
  1. CRESTOR [Suspect]
     Indication: HYPERCHOLESTEROLAEMIA
     Route: 048
  2. LOVASTATIN [Concomitant]
  3. BENAZEPRIL HYDROCHLORIDE [Concomitant]
  4. BENAZEPRIL HYDROCHLORIDE [Concomitant]
  5. BENADRYL [Concomitant]
  6. IBUPROFEN [Concomitant]

REACTIONS (4)
  - ABDOMINAL PAIN UPPER [None]
  - BRONCHITIS [None]
  - DYSPNOEA [None]
  - FLATULENCE [None]
